FAERS Safety Report 6248373-1 (Version None)
Quarter: 2009Q2

REPORT INFORMATION
  Report Type: 
  Country: None (occurrence: None)
  Receive Date: 20090629
  Receipt Date: 20090623
  Transmission Date: 20091009
  Serious: Yes (Death, Hospitalization, Other)
  Sender: FDA-Public Use
  Company Number: PHHY2008US32779

PATIENT
  Sex: Male

DRUGS (1)
  1. GLEEVEC [Suspect]
     Indication: MALIGNANT MAST CELL NEOPLASM
     Dosage: 300 MG, UNK
     Route: 048
     Dates: start: 20090320

REACTIONS (7)
  - ASCITES [None]
  - BLOOD POTASSIUM DECREASED [None]
  - CEREBROVASCULAR ACCIDENT [None]
  - OEDEMA [None]
  - PEPTIC ULCER [None]
  - PORTAL HYPERTENSION [None]
  - UPPER GASTROINTESTINAL HAEMORRHAGE [None]
